FAERS Safety Report 25198809 (Version 2)
Quarter: 2025Q3

REPORT INFORMATION
  Report Type: Report from Study
  Country: US (occurrence: US)
  Receive Date: 20250415
  Receipt Date: 20250826
  Transmission Date: 20251021
  Serious: No
  Sender: SUNOVION
  Company Number: US-SUMITOMO PHARMA SWITZERLAND GMBH-2025SPA002562

PATIENT
  Age: 86 Year
  Sex: Male

DRUGS (11)
  1. ORGOVYX [Suspect]
     Active Substance: RELUGOLIX
     Indication: Prostate cancer
     Dosage: 360 MG, SINGLE
     Route: 048
     Dates: start: 20241219, end: 20241219
  2. ORGOVYX [Suspect]
     Active Substance: RELUGOLIX
     Dosage: 120 MG, QD
     Route: 048
     Dates: start: 20241220
  3. ATORVASTATIN [Concomitant]
     Active Substance: ATORVASTATIN
  4. DUTASTERIDE [Concomitant]
     Active Substance: DUTASTERIDE
  5. LOSARTAN [Concomitant]
     Active Substance: LOSARTAN
  6. ASPIRIN [Concomitant]
     Active Substance: ASPIRIN
  7. OXYBUTYNIN [Concomitant]
     Active Substance: OXYBUTYNIN
  8. VITAMIN D3 [Concomitant]
     Active Substance: CHOLECALCIFEROL
  9. LOPERAMIDE [Concomitant]
     Active Substance: LOPERAMIDE
  10. ROBAFEN DM [Concomitant]
     Active Substance: DEXTROMETHORPHAN HYDROBROMIDE\GUAIFENESIN
  11. TAMSULOSIN [Concomitant]
     Active Substance: TAMSULOSIN

REACTIONS (3)
  - Gastrooesophageal reflux disease [Unknown]
  - Diarrhoea [Unknown]
  - Product dose omission issue [Recovered/Resolved]

NARRATIVE: CASE EVENT DATE: 20250228
